FAERS Safety Report 19754484 (Version 1)
Quarter: 2021Q3

REPORT INFORMATION
  Report Type: Spontaneous
  Country: BR (occurrence: BR)
  Receive Date: 20210827
  Receipt Date: 20210827
  Transmission Date: 20211014
  Serious: Yes (Hospitalization, Other)
  Sender: FDA-Public Use
  Company Number: BR-ASTELLAS-2021US031828

PATIENT
  Age: 10 Month
  Sex: Female

DRUGS (4)
  1. MYCOPHENOLATE MOFETIL. [Suspect]
     Active Substance: MYCOPHENOLATE MOFETIL
     Indication: LIVER TRANSPLANT
     Dosage: UNK UNK, UNKNOWN FREQ.
     Route: 065
  2. TACROLIMUS. [Suspect]
     Active Substance: TACROLIMUS
     Indication: LIVER TRANSPLANT
     Dosage: UNK UNK, UNKNOWN FREQ. (TACROLIMUS TARGET LEVEL WAS 8?10 NG/ML (FIRST MONTH))
     Route: 065
  3. TACROLIMUS. [Suspect]
     Active Substance: TACROLIMUS
     Dosage: UNK UNK, UNKNOWN FREQ. (TACROLIMUS TARGET LEVEL FROM 7.5 TO 4.5 NG/ML)
     Route: 065
  4. GANCICLOVIR. [Concomitant]
     Active Substance: GANCICLOVIR
     Indication: ANTIVIRAL PROPHYLAXIS
     Route: 042

REACTIONS (5)
  - Epstein-Barr virus infection [Not Recovered/Not Resolved]
  - Complications of transplanted liver [Recovered/Resolved]
  - Smooth muscle cell neoplasm [Recovered/Resolved]
  - Hepatic neoplasm [Recovered/Resolved]
  - Gastrointestinal neoplasm [Recovered/Resolved]
